FAERS Safety Report 4654126-8 (Version None)
Quarter: 2005Q2

REPORT INFORMATION
  Report Type: 
  Country: None (occurrence: None)
  Receive Date: 20050505
  Receipt Date: 20050429
  Transmission Date: 20051028
  Serious: Yes (Hospitalization)
  Sender: FDA-Public Use
  Company Number: CM-MERCK-0505USA00122

PATIENT
  Age: 40 Year
  Sex: Male
  Weight: 75 kg

DRUGS (1)
  1. STROMECTOL [Suspect]
     Route: 048
     Dates: start: 20050312, end: 20050312

REACTIONS (7)
  - ABNORMAL BEHAVIOUR [None]
  - CONJUNCTIVAL HAEMORRHAGE [None]
  - HEADACHE [None]
  - INCOHERENT [None]
  - PYREXIA [None]
  - VERTIGO [None]
  - VISION BLURRED [None]
